FAERS Safety Report 9375175 (Version 1)
Quarter: 2013Q2

REPORT INFORMATION
  Report Type: Spontaneous
  Country: GB (occurrence: GB)
  Receive Date: 20130628
  Receipt Date: 20130628
  Transmission Date: 20140414
  Serious: Yes (Other)
  Sender: FDA-Public Use
  Company Number: GB-PFIZER INC-2013192655

PATIENT
  Sex: Female

DRUGS (2)
  1. ATENOLOL [Suspect]
     Dosage: 50 MG, UNK
     Route: 048
  2. ATENOLOL [Suspect]
     Dosage: 25 MG, UNK
     Route: 048

REACTIONS (3)
  - Diabetes mellitus [Unknown]
  - Coeliac disease [Unknown]
  - Drug intolerance [Unknown]
